FAERS Safety Report 14315295 (Version 1)
Quarter: 2017Q4

REPORT INFORMATION
  Report Type: Spontaneous
  Country: GB (occurrence: GB)
  Receive Date: 20171221
  Receipt Date: 20171221
  Transmission Date: 20180321
  Serious: Yes (Other)
  Sender: FDA-Public Use
  Company Number: GB-TEVA-2017-GB-834710

PATIENT
  Age: 69 Year
  Sex: Female

DRUGS (2)
  1. TRAMADOL. [Concomitant]
     Active Substance: TRAMADOL
  2. COCODAMOL [Suspect]
     Active Substance: ACETAMINOPHEN\CODEINE PHOSPHATE
     Indication: ANALGESIC THERAPY
     Dosage: 6 DOSAGE FORMS DAILY; 30/500
     Route: 048
     Dates: start: 20171103, end: 20171107

REACTIONS (2)
  - Abdominal pain upper [Recovering/Resolving]
  - Gastrointestinal pain [Recovered/Resolved with Sequelae]

NARRATIVE: CASE EVENT DATE: 20171103
